FAERS Safety Report 8809528 (Version 2)
Quarter: 2012Q4

REPORT INFORMATION
  Report Type: 
  Country: US (occurrence: US)
  Receive Date: 20120926
  Receipt Date: 20121017
  Transmission Date: 20130627
  Serious: Yes (Hospitalization)
  Sender: FDA-Public Use
  Company Number: US-GILEAD-2012-0061810

PATIENT
  Sex: Female

DRUGS (1)
  1. LETAIRIS [Suspect]
     Indication: PULMONARY ARTERIAL HYPERTENSION
     Dosage: 10 mg, UNK
     Route: 048
     Dates: start: 20120906

REACTIONS (4)
  - Localised infection [Unknown]
  - Cellulitis [Unknown]
  - Fluid retention [Unknown]
  - Oedema [Unknown]
